FAERS Safety Report 5581521-5 (Version None)
Quarter: 2008Q1

REPORT INFORMATION
  Report Type: 
  Country: None (occurrence: None)
  Receive Date: 20080104
  Receipt Date: 20071229
  Transmission Date: 20080703
  Serious: Yes (Other)
  Sender: FDA-Public Use
  Company Number: FR-ROCHE-539097

PATIENT
  Age: 25 Year
  Sex: Female

DRUGS (1)
  1. ROACCUTANE [Suspect]
     Indication: ACNE
     Route: 065
     Dates: end: 20071018

REACTIONS (2)
  - NO ADVERSE EVENT [None]
  - PREGNANCY [None]
